FAERS Safety Report 5477710-0 (Version None)
Quarter: 2007Q4

REPORT INFORMATION
  Report Type: 
  Country: None (occurrence: None)
  Receive Date: 20071003
  Receipt Date: 20071003
  Transmission Date: 20080405
  Serious: Yes (Hospitalization)
  Sender: FDA-Public Use
  Company Number: None

PATIENT
  Sex: Female
  Weight: 68.2 kg

DRUGS (2)
  1. CARBOPLATIN [Suspect]
     Dosage: 606 MG
     Dates: end: 20070710
  2. TAXOL [Suspect]
     Dosage: 302 MG
     Dates: end: 20070710

REACTIONS (5)
  - ASTHENIA [None]
  - HYPOTENSION [None]
  - HYPOVOLAEMIA [None]
  - NAUSEA [None]
  - VOMITING [None]
